FAERS Safety Report 14185130 (Version 1)
Quarter: 2017Q4

REPORT INFORMATION
  Report Type: Spontaneous
  Country: US (occurrence: US)
  Receive Date: 20171114
  Receipt Date: 20171114
  Transmission Date: 20180321
  Serious: No
  Sender: FDA-Public Use
  Company Number: US-MISSION PHARMACAL COMPANY-2033999

PATIENT
  Age: 51 Year
  Sex: Female

DRUGS (3)
  1. CHLORZOXAZONE. [Concomitant]
     Active Substance: CHLORZOXAZONE
     Route: 065
  2. TRAZODONE [Concomitant]
     Active Substance: TRAZODONE HYDROCHLORIDE
     Route: 065
  3. LITHOSTAT [Suspect]
     Active Substance: ACETOHYDROXAMIC ACID
     Indication: CATHETER MANAGEMENT
     Route: 048
     Dates: start: 20171106, end: 20171107

REACTIONS (7)
  - Disorientation [Recovered/Resolved]
  - Migraine [Recovered/Resolved]
  - Middle insomnia [Recovered/Resolved]
  - Somnolence [Recovered/Resolved]
  - Unresponsive to stimuli [Recovered/Resolved]
  - Feeling abnormal [Recovered/Resolved]
  - Headache [Not Recovered/Not Resolved]
